FAERS Safety Report 7214885-7 (Version None)
Quarter: 2011Q1

REPORT INFORMATION
  Report Type: 
  Country: None (occurrence: None)
  Receive Date: 20110107
  Receipt Date: 20100506
  Transmission Date: 20110831
  Serious: No
  Sender: FDA-Public Use
  Company Number: A0856334A

PATIENT
  Age: 74 Year
  Sex: Female

DRUGS (3)
  1. LOVAZA [Suspect]
     Indication: BLOOD CHOLESTEROL INCREASED
     Dosage: 4CAP PER DAY
     Route: 048
     Dates: start: 20100416, end: 20100420
  2. INSULIN [Concomitant]
  3. UNKNOWN MEDICATION [Concomitant]

REACTIONS (2)
  - ILL-DEFINED DISORDER [None]
  - SKIN ODOUR ABNORMAL [None]
